FAERS Safety Report 4745514-X (Version None)
Quarter: 2005Q3

REPORT INFORMATION
  Report Type: 
  Country: None (occurrence: None)
  Receive Date: 20050815
  Receipt Date: 20050708
  Transmission Date: 20060218
  Serious: Yes (Hospitalization)
  Sender: FDA-Public Use
  Company Number: US-MERCK-0507USA01184

PATIENT
  Age: 84 Year
  Sex: Female
  Weight: 49 kg

DRUGS (1)
  1. VIOXX [Suspect]
     Indication: ARTHRITIS
     Route: 048
     Dates: start: 20020101, end: 20040901

REACTIONS (3)
  - CONFUSIONAL STATE [None]
  - DIZZINESS [None]
  - MYOCARDIAL INFARCTION [None]
